FAERS Safety Report 10003751 (Version 1)
Quarter: 2014Q1

REPORT INFORMATION
  Report Type: Spontaneous
  Country: US (occurrence: US)
  Receive Date: 20140312
  Receipt Date: 20140312
  Transmission Date: 20141002
  Serious: Yes (Disabling)
  Sender: FDA-Public Use
  Company Number: US-GE HEALTHCARE MEDICAL DIAGNOSTICS-OSCN-PR-1102S-0075

PATIENT
  Sex: Male

DRUGS (3)
  1. OMNISCAN [Suspect]
     Indication: PRODUCT USED FOR UNKNOWN INDICATION
     Route: 042
     Dates: start: 20040915, end: 20040915
  2. OMNISCAN [Suspect]
     Indication: DIPLOPIA
     Route: 042
     Dates: start: 20070317, end: 20070317
  3. OMNISCAN [Suspect]
     Indication: ABSCESS DRAINAGE
     Route: 042
     Dates: start: 20080117, end: 20080117

REACTIONS (1)
  - Nephrogenic systemic fibrosis [Not Recovered/Not Resolved]
